FAERS Safety Report 9252936 (Version 1)
Quarter: 2013Q1

REPORT INFORMATION
  Report Type: Spontaneous
  Country: US (occurrence: None)
  Receive Date: 20130305
  Receipt Date: 20130305
  Transmission Date: 20140127
  Serious: Yes (Other)
  Sender: FDA-Public Use
  Company Number: 163-21880-12081873

PATIENT
  Age: 59 Year
  Sex: Female

DRUGS (8)
  1. REVLIMID [Suspect]
     Indication: PLASMA CELL MYELOMA
     Dosage: 21 IN 21 D
     Route: 048
     Dates: start: 20100323
  2. ASPIRIN (ACETYLSALICYLIC ACID) [Concomitant]
  3. PRILOSEC [Concomitant]
  4. CALCIUM + VITAMIN D (LEKOVIT CA) [Concomitant]
  5. VITAMIN B COMPLEX (B-KOMPLEX ^LECIVA^) [Concomitant]
  6. VITAMINS [Concomitant]
  7. VITAMIN D (ERGOCALCIFEROL) [Concomitant]
  8. FISH OIL (FISH OIL) [Concomitant]

REACTIONS (2)
  - Nasopharyngitis [None]
  - Cough [None]
